FAERS Safety Report 5231233-2 (Version None)
Quarter: 2007Q1

REPORT INFORMATION
  Report Type: 
  Country: None (occurrence: None)
  Receive Date: 20070205
  Receipt Date: 20070205
  Transmission Date: 20070707
  Serious: Yes (Other)
  Sender: FDA-Public Use
  Company Number: None

PATIENT
  Age: 17 Year
  Sex: Female
  Weight: 56 kg

DRUGS (1)
  1. VIVAGLOBIN [Suspect]
     Dosage: 5.6 GM SC Q WK
     Route: 058
     Dates: start: 20070127

REACTIONS (1)
  - RASH [None]
